FAERS Safety Report 7360796-6 (Version None)
Quarter: 2011Q1

REPORT INFORMATION
  Report Type: 
  Country: None (occurrence: None)
  Receive Date: 20110318
  Receipt Date: 20110304
  Transmission Date: 20110831
  Serious: Yes (Hospitalization)
  Sender: FDA-Public Use
  Company Number: DE-GENZYME-CAMP-1001444

PATIENT
  Sex: Male
  Weight: 75 kg

DRUGS (8)
  1. KEPINOL [Concomitant]
     Indication: PRODUCT USED FOR UNKNOWN INDICATION
  2. CAMPATH [Suspect]
     Dosage: 30 MG, 3X/W ON DAYS 1-4 AND 15-18 OF EACH CYCLE
     Route: 058
     Dates: start: 20101115, end: 20110204
  3. TAZOBAC [Concomitant]
     Indication: PNEUMONIA
     Dosage: UNK
     Dates: start: 20110201, end: 20110218
  4. DEXAMETHASONE [Suspect]
     Indication: CHRONIC LYMPHOCYTIC LEUKAEMIA
     Dosage: 40 MG, QD
     Route: 048
     Dates: start: 20101115, end: 20110127
  5. CAMPATH [Suspect]
     Dosage: 30 MG, 3X/W ON DAYS 1-4 AND 15-18 OF EACH CYCLE
     Route: 058
     Dates: start: 20101115, end: 20110204
  6. NEULASTA [Suspect]
     Indication: NEUTROPENIA
     Dosage: 6 MG, QD
     Route: 058
     Dates: start: 20101115, end: 20110124
  7. VALTREX [Concomitant]
     Indication: PROPHYLAXIS
     Dosage: UNK
  8. CAMPATH [Suspect]
     Indication: CHRONIC LYMPHOCYTIC LEUKAEMIA
     Dosage: 30 MG, 3X/W ON DAYS 1-4 AND 15-18 OF EACH CYCLE
     Route: 058
     Dates: start: 20101115, end: 20110204

REACTIONS (2)
  - PLEURAL DISORDER [None]
  - PYREXIA [None]
